FAERS Safety Report 6678670-7 (Version None)
Quarter: 2010Q2

REPORT INFORMATION
  Report Type: 
  Country: None (occurrence: None)
  Receive Date: 20100413
  Receipt Date: 20100401
  Transmission Date: 20101027
  Serious: Yes (Death, Other)
  Sender: FDA-Public Use
  Company Number: JP-PFIZER INC-2010043130

PATIENT
  Sex: Female

DRUGS (1)
  1. MYCOBUTIN [Suspect]
     Indication: MYCOBACTERIAL INFECTION
     Dosage: 300MG/DAY
     Route: 048

REACTIONS (1)
  - DEATH [None]
